FAERS Safety Report 14292702 (Version 2)
Quarter: 2019Q4

REPORT INFORMATION
  Report Type: Report from Study
  Country: US (occurrence: US)
  Receive Date: 20171215
  Receipt Date: 20191216
  Transmission Date: 20200122
  Serious: No
  Sender: FDA-Public Use
  Company Number: US-ROCHE-2040272

PATIENT
  Sex: Female

DRUGS (2)
  1. OCREVUS [Suspect]
     Active Substance: OCRELIZUMAB
     Indication: MULTIPLE SCLEROSIS
     Dosage: NEXT ESTIMATED DOSE: ON 12/DEC/2017
     Route: 065
     Dates: start: 20171115
  2. OCREVUS [Suspect]
     Active Substance: OCRELIZUMAB
     Dosage: NEXT SCHEDULED APPT ON 01/07/2020
     Route: 065
     Dates: start: 20190626

REACTIONS (1)
  - Nasopharyngitis [Unknown]
